FAERS Safety Report 8186765-4 (Version None)
Quarter: 2012Q1

REPORT INFORMATION
  Report Type: 
  Country: None (occurrence: None)
  Receive Date: 20120306
  Receipt Date: 20120306
  Transmission Date: 20120608
  Serious: Yes (Disabling, Other)
  Sender: FDA-Public Use
  Company Number: None

PATIENT
  Age: 41 Year
  Sex: Female
  Weight: 62.595 kg

DRUGS (2)
  1. ZYRTEC [Suspect]
     Indication: HYPERSENSITIVITY
     Dosage: 10MG
     Dates: start: 20060401, end: 20120305
  2. ZYRTEC [Suspect]
     Indication: SEASONAL ALLERGY
     Dosage: 10MG
     Dates: start: 20060401, end: 20120305

REACTIONS (2)
  - WITHDRAWAL SYNDROME [None]
  - PRURITUS [None]
